FAERS Safety Report 8295660-1 (Version None)
Quarter: 2012Q2

REPORT INFORMATION
  Report Type: 
  Country: None (occurrence: None)
  Receive Date: 20120418
  Receipt Date: 20120409
  Transmission Date: 20120825
  Serious: Yes (Other)
  Sender: FDA-Public Use
  Company Number: JP-MERCK-1112USA03443

PATIENT
  Age: 75 Year
  Sex: Female

DRUGS (2)
  1. FOSAMAX [Suspect]
     Indication: OSTEOPOROSIS
     Route: 048
     Dates: end: 20111228
  2. PLATIBIT [Concomitant]
     Indication: OSTEOPOROSIS
     Route: 048
     Dates: end: 20111228

REACTIONS (1)
  - FEMORAL NECK FRACTURE [None]
